FAERS Safety Report 4452903-X (Version None)
Quarter: 2004Q3

REPORT INFORMATION
  Report Type: 
  Country: None (occurrence: None)
  Receive Date: 20040916
  Receipt Date: 20040903
  Transmission Date: 20050211
  Serious: Yes (Other)
  Sender: FDA-Public Use
  Company Number: 2004056093

PATIENT
  Age: 34 Year
  Sex: Female
  Weight: 72.5755 kg

DRUGS (4)
  1. NEURONTIN [Suspect]
     Indication: FIBROMYALGIA
     Dosage: 900 MG (300 MG, 3 IN 1 D), ORAL
     Route: 048
     Dates: start: 19990101
  2. OXYCODONE HCL [Concomitant]
  3. BACLOFEN [Concomitant]
  4. VENLAFAXINE HCL [Concomitant]

REACTIONS (3)
  - DISEASE RECURRENCE [None]
  - HALLUCINATION, AUDITORY [None]
  - TREATMENT NONCOMPLIANCE [None]
